FAERS Safety Report 18140402 (Version 2)
Quarter: 2020Q3

REPORT INFORMATION
  Report Type: Spontaneous
  Country: CN (occurrence: CN)
  Receive Date: 20200812
  Receipt Date: 20200821
  Transmission Date: 20201103
  Serious: Yes (Disabling, Other)
  Sender: FDA-Public Use
  Company Number: CN-009507513-2008CHN002005

PATIENT
  Age: 53 Year
  Sex: Female
  Weight: 70 kg

DRUGS (14)
  1. SODIUM CHLORIDE. [Concomitant]
     Active Substance: SODIUM CHLORIDE
     Indication: CEREBRAL DISORDER
     Dosage: 100ML IVGTT Q12H
     Route: 042
     Dates: start: 20200712, end: 20200723
  2. MANNITOL. [Concomitant]
     Active Substance: MANNITOL
     Indication: DEHYDRATION
     Dosage: 150 ML IVGTT Q12H
     Route: 042
     Dates: start: 20200712, end: 20200727
  3. NORVASC [Suspect]
     Active Substance: AMLODIPINE BESYLATE
     Indication: GASTRIC DISORDER
  4. CIMETIDINE [Suspect]
     Active Substance: CIMETIDINE
     Indication: GASTRIC DISORDER
  5. NORVASC [Suspect]
     Active Substance: AMLODIPINE BESYLATE
     Indication: FLUID IMBALANCE
  6. HYZAAR [Suspect]
     Active Substance: HYDROCHLOROTHIAZIDE\LOSARTAN POTASSIUM
     Indication: HYPERTENSION
     Dosage: ONE TABLET, QD
     Route: 048
     Dates: start: 20200712, end: 20200730
  7. HYZAAR [Suspect]
     Active Substance: HYDROCHLOROTHIAZIDE\LOSARTAN POTASSIUM
     Indication: GASTRIC DISORDER
  8. HYZAAR [Suspect]
     Active Substance: HYDROCHLOROTHIAZIDE\LOSARTAN POTASSIUM
     Indication: NUTRITIONAL SUPPLEMENTATION
  9. CIMETIDINE [Suspect]
     Active Substance: CIMETIDINE
     Indication: CEREBRAL HAEMORRHAGE
     Dosage: 0.6G QD IVGTT
     Route: 042
     Dates: start: 20200714, end: 20200727
  10. PIRACETAM [Concomitant]
     Active Substance: PIRACETAM
     Indication: CEREBRAL DISORDER
     Dosage: UNK
     Dates: start: 20200712, end: 20200723
  11. HYZAAR [Suspect]
     Active Substance: HYDROCHLOROTHIAZIDE\LOSARTAN POTASSIUM
     Indication: FLUID IMBALANCE
  12. NORVASC [Suspect]
     Active Substance: AMLODIPINE BESYLATE
     Indication: HYPERTENSION
     Dosage: 5 MG, QD
     Route: 048
     Dates: start: 20200712, end: 20200730
  13. NORVASC [Suspect]
     Active Substance: AMLODIPINE BESYLATE
     Indication: NUTRITIONAL SUPPLEMENTATION
  14. MANNITOL. [Concomitant]
     Active Substance: MANNITOL
     Indication: REDUCTION OF INCREASED INTRACRANIAL PRESSURE

REACTIONS (2)
  - White blood cell count decreased [Recovering/Resolving]
  - Hepatic failure [Recovering/Resolving]

NARRATIVE: CASE EVENT DATE: 20200727
